FAERS Safety Report 4990286-7 (Version None)
Quarter: 2006Q2

REPORT INFORMATION
  Report Type: 
  Country: None (occurrence: None)
  Receive Date: 20060501
  Receipt Date: 20060501
  Transmission Date: 20061013
  Serious: Yes (Disabling, Other)
  Sender: FDA-Public Use
  Company Number: None

PATIENT
  Sex: Female
  Weight: 56.6996 kg

DRUGS (2)
  1. SEASONALE  0.15/0.03 MG   DURAMED PHARMACEUTICALS [Suspect]
     Indication: CONTRACEPTION
     Dosage: 1 TAB DAILY PO
     Route: 048
     Dates: start: 20050615, end: 20060227
  2. WOMEN'S DAILY VITAMIN SUPPLEMENT [Concomitant]

REACTIONS (5)
  - OVARIAN DISORDER [None]
  - PELVIC CONGESTION [None]
  - PELVIC PAIN [None]
  - VEIN DISORDER [None]
  - VENOGRAM ABNORMAL [None]
